FAERS Safety Report 4627045-0 (Version None)
Quarter: 2005Q1

REPORT INFORMATION
  Report Type: 
  Country: None (occurrence: None)
  Receive Date: 20050331
  Receipt Date: 20050324
  Transmission Date: 20050727
  Serious: Yes (Hospitalization)
  Sender: FDA-Public Use
  Company Number: SP00415

PATIENT
  Age: 9 Year
  Sex: Female

DRUGS (14)
  1. XIFAXAN [Suspect]
     Indication: OVERGROWTH BACTERIAL
     Dosage: SEE IMAGE/03/11-12/2005
     Dates: start: 20050301, end: 20050304
  2. COUMADIN [Concomitant]
  3. ELAVIL [Concomitant]
  4. GABAPENTIN [Concomitant]
  5. LANSOPRAZOLE [Concomitant]
  6. GENOTROPIN [Concomitant]
  7. FLUCONAZOLE [Concomitant]
  8. CIPROFLOXACIN [Concomitant]
  9. GENTAMIACIN [Concomitant]
  10. AMITRIPTYLINE HCL TAB [Concomitant]
  11. ZELNORM [Concomitant]
  12. FENTANYL (POULTICE OR PATCH) [Concomitant]
  13. ZOFRAN [Concomitant]
  14. TPN [Concomitant]

REACTIONS (5)
  - ABDOMINAL PAIN [None]
  - ACTIVATED PARTIAL THROMBOPLASTIN TIME PROLONGED [None]
  - ANAEMIA [None]
  - GASTRIC HAEMORRHAGE [None]
  - INTERNATIONAL NORMALISED RATIO INCREASED [None]
